FAERS Safety Report 17826848 (Version 3)
Quarter: 2020Q3

REPORT INFORMATION
  Report Type: Report from Study
  Country: DE (occurrence: DE)
  Receive Date: 20200526
  Receipt Date: 20200715
  Transmission Date: 20201102
  Serious: Yes (Hospitalization)
  Sender: FDA-Public Use
  Company Number: DE-REGENERON PHARMACEUTICALS, INC.-2020-39054

PATIENT

DRUGS (10)
  1. PANTOPRAZOLE [Concomitant]
     Active Substance: PANTOPRAZOLE
     Indication: GASTRITIS PROPHYLAXIS
     Dosage: 40 MG, QD
     Route: 048
     Dates: start: 20200311
  2. PREDNISOLONE. [Concomitant]
     Active Substance: PREDNISOLONE
     Indication: COLITIS
     Dosage: 70 MG, QD
     Route: 048
     Dates: start: 20200515, end: 20200518
  3. MOVICOL [Concomitant]
     Active Substance: POLYETHYLENE GLYCOL 3350\POTASSIUM CHLORIDE\SODIUM BICARBONATE\SODIUM CHLORIDE
     Indication: TUMOUR PAIN
     Dosage: 1 POUCH, QD
     Route: 048
     Dates: start: 20200321
  4. PALLADONE [Concomitant]
     Active Substance: HYDROMORPHONE HYDROCHLORIDE
     Indication: TUMOUR PAIN
     Dosage: 8 MG, BID
     Route: 048
     Dates: start: 20200408, end: 20200505
  5. CEMIPLIMAB [Suspect]
     Active Substance: CEMIPLIMAB
     Indication: SQUAMOUS CELL CARCINOMA OF SKIN
     Dosage: 350 MG, Q3W
     Route: 042
     Dates: start: 20200311
  6. GABAPENTINE [Concomitant]
     Active Substance: GABAPENTIN
     Indication: PHANTOM LIMB SYNDROME
     Dosage: 600 MG, TID
     Route: 048
     Dates: start: 20200506
  7. NOVAMINSULFONE SODIUM [Concomitant]
     Active Substance: METAMIZOLE
     Indication: TUMOUR PAIN
     Dosage: 40 GTT, QID
     Route: 048
     Dates: start: 20200401, end: 20200505
  8. ADVANTAN MILK [Concomitant]
     Indication: TUMOUR PAIN
     Dosage: 1 APPLICATION, QD
     Route: 061
     Dates: start: 20200513
  9. PALLADON [Concomitant]
     Active Substance: HYDROMORPHONE
     Indication: TUMOUR PAIN
     Dosage: 16 MG, TID
     Route: 048
     Dates: start: 20200506
  10. IBUPROFENE [Concomitant]
     Active Substance: IBUPROFEN
     Indication: TUMOUR PAIN
     Dosage: 600 MG, AS NECESSARY
     Route: 048
     Dates: start: 20200422

REACTIONS (1)
  - Fatigue [Recovered/Resolved]

NARRATIVE: CASE EVENT DATE: 20200518
